FAERS Safety Report 4676918-1 (Version None)
Quarter: 2005Q2

REPORT INFORMATION
  Report Type: 
  Country: None (occurrence: None)
  Receive Date: 20050527
  Receipt Date: 20050513
  Transmission Date: 20051028
  Serious: Yes (Disabling, Congenital Anomaly)
  Sender: FDA-Public Use
  Company Number: DE-ABBOTT-05P-062-0300673-00

PATIENT
  Sex: Male

DRUGS (1)
  1. KLACID PRO [Suspect]
     Indication: DRUG EXPOSURE DURING PREGNANCY

REACTIONS (2)
  - DEAFNESS CONGENITAL [None]
  - DEAFNESS NEUROSENSORY [None]
